FAERS Safety Report 11475343 (Version 1)
Quarter: 2015Q3

REPORT INFORMATION
  Report Type: Spontaneous
  Country: US (occurrence: US)
  Receive Date: 20150909
  Receipt Date: 20150909
  Transmission Date: 20151125
  Serious: No
  Sender: FDA-Public Use
  Company Number: US-LEO PHARMA-236816

PATIENT
  Sex: Female

DRUGS (1)
  1. DAIVOBET [Suspect]
     Active Substance: BETAMETHASONE DIPROPIONATE\CALCIPOTRIENE
     Indication: PSORIASIS
     Route: 061
     Dates: start: 20150821, end: 20150823

REACTIONS (4)
  - Hypersensitivity [Unknown]
  - Swelling [Recovered/Resolved]
  - Head banging [Recovered/Resolved]
  - Psoriasis [Recovered/Resolved]
